FAERS Safety Report 14154790 (Version 1)
Quarter: 2017Q4

REPORT INFORMATION
  Report Type: Spontaneous
  Country: US (occurrence: US)
  Receive Date: 20171102
  Receipt Date: 20171102
  Transmission Date: 20180321
  Serious: Yes (Hospitalization)
  Sender: FDA-Public Use
  Company Number: None

PATIENT
  Age: 28 Year
  Sex: Female
  Weight: 62.1 kg

DRUGS (3)
  1. REGLAN [Suspect]
     Active Substance: METOCLOPRAMIDE HYDROCHLORIDE
     Indication: VOMITING IN PREGNANCY
     Dosage: ?          QUANTITY:1 TABLET(S);?
     Route: 048
     Dates: start: 20171030, end: 20171101
  2. B6 [Concomitant]
     Active Substance: PYRIDOXINE HYDROCHLORIDE
  3. PRENATAL [Concomitant]
     Active Substance: VITAMINS

REACTIONS (4)
  - Dysphonia [None]
  - Eye movement disorder [None]
  - Vision blurred [None]
  - Dyskinesia [None]

NARRATIVE: CASE EVENT DATE: 20171101
